FAERS Safety Report 23360146 (Version 2)
Quarter: 2024Q1

REPORT INFORMATION
  Report Type: Spontaneous
  Country: ES (occurrence: ES)
  Receive Date: 20240103
  Receipt Date: 20240217
  Transmission Date: 20240410
  Serious: Yes (Hospitalization, Other)
  Sender: FDA-Public Use
  Company Number: ES-MLMSERVICE-20231215-4728491-1

PATIENT
  Age: 38 Year
  Sex: Male

DRUGS (1)
  1. AMOXICILLIN\CLAVULANIC ACID [Suspect]
     Active Substance: AMOXICILLIN\CLAVULANIC ACID
     Indication: Antibiotic therapy
     Dosage: UNK
     Route: 065

REACTIONS (6)
  - Haemophagocytic lymphohistiocytosis [Recovering/Resolving]
  - Epstein-Barr virus infection [Recovering/Resolving]
  - Hypercholesterolaemia [Recovering/Resolving]
  - Hypertriglyceridaemia [Recovering/Resolving]
  - Drug eruption [Recovered/Resolved]
  - Rash [Recovered/Resolved]
